FAERS Safety Report 9612627 (Version 1)
Quarter: 2013Q4

REPORT INFORMATION
  Report Type: Spontaneous
  Country: US (occurrence: US)
  Receive Date: 20131010
  Receipt Date: 20131010
  Transmission Date: 20140711
  Serious: Yes (Hospitalization, Other)
  Sender: FDA-Public Use
  Company Number: US-B.I. PHARMACEUTICALS,INC./RIDGEFIELD-2013-BI-31653BP

PATIENT
  Age: 60 Year
  Sex: Female
  Weight: 71 kg

DRUGS (2)
  1. SPIRIVA [Suspect]
     Indication: CHRONIC OBSTRUCTIVE PULMONARY DISEASE
     Dosage: 18 MCG
     Route: 055
     Dates: start: 201112
  2. SPIRIVA [Suspect]
     Dosage: 18 MCG
     Route: 048
     Dates: start: 201112

REACTIONS (3)
  - Lung neoplasm malignant [Not Recovered/Not Resolved]
  - Chest pain [Recovered/Resolved]
  - Incorrect route of drug administration [Recovered/Resolved]
